FAERS Safety Report 4936804-6 (Version None)
Quarter: 2006Q1

REPORT INFORMATION
  Report Type: 
  Country: None (occurrence: None)
  Receive Date: 20060307
  Receipt Date: 20060224
  Transmission Date: 20060701
  Serious: Yes (Hospitalization)
  Sender: FDA-Public Use
  Company Number: US-MERCK-0603USA00047

PATIENT
  Age: 68 Year
  Sex: Male
  Weight: 77 kg

DRUGS (1)
  1. VIOXX [Suspect]
     Indication: SPONDYLITIS
     Route: 065
     Dates: start: 20020614, end: 20030924

REACTIONS (10)
  - CEREBROVASCULAR ACCIDENT [None]
  - CLOSED HEAD INJURY [None]
  - DIVERTICULUM [None]
  - EPIDIDYMITIS [None]
  - NEPHROLITHIASIS [None]
  - PAIN IN EXTREMITY [None]
  - PELVI-URETERIC OBSTRUCTION [None]
  - PROSTATE EXAMINATION ABNORMAL [None]
  - SINUS HEADACHE [None]
  - URETERIC OBSTRUCTION [None]
